FAERS Safety Report 15585706 (Version 1)
Quarter: 2018Q4

REPORT INFORMATION
  Report Type: Spontaneous
  Country: CN (occurrence: CN)
  Receive Date: 20181105
  Receipt Date: 20181105
  Transmission Date: 20190205
  Serious: Yes (Other)
  Sender: FDA-Public Use
  Company Number: CN-PFIZER INC-2018445295

PATIENT
  Age: 70 Year
  Sex: Male
  Weight: 52 kg

DRUGS (1)
  1. CELECOXIB. [Suspect]
     Active Substance: CELECOXIB
     Indication: ANALGESIC THERAPY
     Dosage: 1 DF, 1X/DAY
     Route: 048
     Dates: start: 20180803, end: 20180803

REACTIONS (4)
  - Pruritus [Recovering/Resolving]
  - Eye swelling [Recovering/Resolving]
  - Rash [Recovering/Resolving]
  - Ocular hyperaemia [Recovering/Resolving]

NARRATIVE: CASE EVENT DATE: 20180804
